FAERS Safety Report 8096525 (Version 2)
Quarter: 2013Q3

REPORT INFORMATION
  Report Type: Report from Study
  Country: DK (occurrence: DK)
  Receive Date: 20110818
  Receipt Date: 20130719
  Transmission Date: 20140515
  Serious: Yes (Disabling)
  Sender: FDA-Public Use
  Company Number: DK-GLAXOSMITHKLINE-B0740623A

PATIENT
  Age: 42 Year
  Sex: Female
  Weight: 51 kg

DRUGS (2)
  1. LAMICTAL [Suspect]
     Indication: DEPRESSION
     Dosage: 100MG TWICE PER DAY
     Route: 048
     Dates: start: 20110201, end: 20110725
  2. CYMBALTA [Concomitant]
     Indication: DEPRESSION
     Route: 065

REACTIONS (2)
  - Memory impairment [Recovered/Resolved]
  - Tinnitus [Recovered/Resolved]
